FAERS Safety Report 24895300 (Version 1)
Quarter: 2025Q1

REPORT INFORMATION
  Report Type: Spontaneous
  Country: US (occurrence: US)
  Receive Date: 20250128
  Receipt Date: 20250128
  Transmission Date: 20250409
  Serious: No
  Sender: GRANULES PHARMACEUTICALS INC
  Company Number: US-GRANULES-US-2025GRASPO00031

PATIENT
  Age: 94 Year
  Sex: Female

DRUGS (1)
  1. ACETAMINOPHEN [Suspect]
     Active Substance: ACETAMINOPHEN
     Indication: Myalgia
     Route: 065
     Dates: start: 202501

REACTIONS (2)
  - Intentional product misuse [Unknown]
  - Product use complaint [Unknown]

NARRATIVE: CASE EVENT DATE: 20250101
